FAERS Safety Report 9263215 (Version 2)
Quarter: 2013Q2

REPORT INFORMATION
  Report Type: Spontaneous
  Country: GB (occurrence: None)
  Receive Date: 20130426
  Receipt Date: 20130426
  Transmission Date: 20140414
  Serious: Yes (Other)
  Sender: FDA-Public Use
  Company Number: 2013-1678

PATIENT
  Age: 71 Year
  Sex: Female
  Weight: 69 kg

DRUGS (3)
  1. BOTULINUM TOXIN TYPE A [Suspect]
     Indication: PRODUCT USED FOR UNKNOWN INDICATION
     Dosage: (1 IN 1 CYCLE (S))
     Dates: start: 201208, end: 201208
  2. STEROIDS [Concomitant]
  3. CLARITHROMYCIN [Concomitant]

REACTIONS (3)
  - Cardiomegaly [None]
  - Cardiac failure [None]
  - Dyspnoea [None]
